FAERS Safety Report 4899858-1 (Version None)
Quarter: 2006Q1

REPORT INFORMATION
  Report Type: 
  Country: None (occurrence: None)
  Receive Date: 20060120
  Receipt Date: 20050829
  Transmission Date: 20060701
  Serious: Yes (Death)
  Sender: FDA-Public Use
  Company Number: 05P-163-0309756-00

PATIENT
  Age: 83 Year
  Sex: Male

DRUGS (1)
  1. HYTRIN 5MG (HYTRIN) (TERAZOSIN HYDROCHLORIDE) [Suspect]
     Dosage: 5 MG, 1 IN 1 D
     Dates: end: 20050119

REACTIONS (1)
  - DEATH [None]
